FAERS Safety Report 8807003 (Version 1)
Quarter: 2012Q4

REPORT INFORMATION
  Report Type: 
  Country: US (occurrence: US)
  Receive Date: 20120925
  Receipt Date: 20120925
  Transmission Date: 20130627
  Serious: No
  Sender: FDA-Public Use
  Company Number: US-ASTRAZENECA-2012SE71605

PATIENT
  Age: 48 Year
  Sex: Female
  Weight: 52.2 kg

DRUGS (9)
  1. SEROQUEL [Suspect]
     Indication: AFFECTIVE DISORDER
     Route: 048
     Dates: start: 2010
  2. SEROQUEL [Suspect]
     Indication: AFFECTIVE DISORDER
     Route: 048
  3. SEROQUEL [Suspect]
     Indication: AFFECTIVE DISORDER
     Route: 048
  4. ZOLOFT [Concomitant]
     Indication: DEPRESSION
  5. PLAQUENIL [Concomitant]
     Indication: ARTHRALGIA
  6. SALGEN [Concomitant]
     Indication: DRY MOUTH
  7. VITAMIN D [Concomitant]
  8. VITAMIN 12 [Concomitant]
  9. CALCIUM [Concomitant]

REACTIONS (3)
  - Insomnia [Recovered/Resolved]
  - Fatigue [Unknown]
  - Drug dose omission [Unknown]
